FAERS Safety Report 20031907 (Version 1)
Quarter: 2021Q4

REPORT INFORMATION
  Report Type: Spontaneous
  Country: RU (occurrence: RU)
  Receive Date: 20211103
  Receipt Date: 20211103
  Transmission Date: 20220303
  Serious: Yes (Hospitalization)
  Sender: FDA-Public Use
  Company Number: RU-ABBVIE-21K-251-4141612-00

PATIENT
  Age: 13 Year
  Sex: Male
  Weight: 39 kg

DRUGS (9)
  1. VALPROIC ACID [Suspect]
     Active Substance: VALPROIC ACID
     Indication: Frontal lobe epilepsy
     Dosage: 250 MG IN MORNING AND 500 MG IN EVENING
     Route: 048
     Dates: start: 20160927, end: 20190828
  2. VALPROIC ACID [Suspect]
     Active Substance: VALPROIC ACID
     Indication: Automatism epileptic
     Dosage: 500 MG IN MORNING AND 500 MG IN EVENING
     Route: 048
     Dates: start: 20190828
  3. VALPROIC ACID [Suspect]
     Active Substance: VALPROIC ACID
     Indication: Emotional disorder
  4. CARBAMAZEPINE [Concomitant]
     Active Substance: CARBAMAZEPINE
     Indication: Product used for unknown indication
     Dates: start: 20160927
  5. LEVOTHYROXINE SODIUM [Concomitant]
     Active Substance: LEVOTHYROXINE SODIUM
     Indication: Product used for unknown indication
     Dates: start: 20190523
  6. PANCREATIN [Concomitant]
     Active Substance: PANCRELIPASE
     Indication: Product used for unknown indication
     Dates: start: 20190523
  7. HYDROXYZINE [Concomitant]
     Active Substance: HYDROXYZINE HYDROCHLORIDE
     Indication: Product used for unknown indication
     Dates: start: 20190403, end: 20190503
  8. 4-AMINO-3-PHENYLBUTYRIC ACID [Concomitant]
     Active Substance: 4-AMINO-3-PHENYLBUTYRIC ACID
     Indication: Product used for unknown indication
     Dates: start: 20190905
  9. GLYCINE [Concomitant]
     Active Substance: GLYCINE
     Indication: Product used for unknown indication
     Dates: start: 20190909

REACTIONS (12)
  - Weight decreased [Recovering/Resolving]
  - Mobility decreased [Not Recovered/Not Resolved]
  - Neurosis [Unknown]
  - Intellectual disability [Unknown]
  - Cognitive disorder [Recovering/Resolving]
  - Hypothalamo-pituitary disorder [Unknown]
  - Secondary hypothyroidism [Unknown]
  - Functional gastrointestinal disorder [Unknown]
  - Cyst [Unknown]
  - Fall [Not Recovered/Not Resolved]
  - Epilepsy [Unknown]
  - Developmental delay [Unknown]

NARRATIVE: CASE EVENT DATE: 20181001
